FAERS Safety Report 4389004-5 (Version None)
Quarter: 2004Q2

REPORT INFORMATION
  Report Type: 
  Country: None (occurrence: None)
  Receive Date: 20040628
  Receipt Date: 20040615
  Transmission Date: 20050107
  Serious: Yes (Hospitalization)
  Sender: FDA-Public Use
  Company Number: 2004-117441-NL

PATIENT
  Age: 57 Year
  Sex: Male

DRUGS (14)
  1. DANAPAROID SODIUM [Suspect]
     Dosage: SUBCUTANEOUS
     Route: 058
     Dates: start: 20040308, end: 20040319
  2. SPIRONOLACTONE [Suspect]
     Dosage: ORAL
     Route: 048
     Dates: start: 20040210
  3. OFLOXACIN [Suspect]
     Dosage: 400 MG
     Dates: start: 20031227
  4. TEICOPLANIN [Suspect]
     Dosage: INTRAVENOUS (NOS)
     Route: 042
     Dates: start: 20031227
  5. ESOMEPRAZOLE [Suspect]
     Dosage: 1 DF ORAL
     Route: 048
     Dates: start: 20040207, end: 20040401
  6. INSULIN LISPRO [Concomitant]
  7. PRAVASTATIN SODIUM [Concomitant]
  8. PROPRANOLOL [Concomitant]
  9. FERROUS SULFATE TAB [Concomitant]
  10. RAMIPRIL [Concomitant]
  11. FUROSEMIDE [Concomitant]
  12. FLUINDIONE [Concomitant]
  13. THIAMINE HCL [Concomitant]
  14. VITAMIN B6 [Concomitant]

REACTIONS (2)
  - ANTI-PLATELET ANTIBODY NEGATIVE [None]
  - THROMBOCYTOPENIA [None]
